FAERS Safety Report 8539501-3 (Version None)
Quarter: 2012Q3

REPORT INFORMATION
  Report Type: 
  Country: None (occurrence: None)
  Receive Date: 20120726
  Receipt Date: 20120725
  Transmission Date: 20120928
  Serious: Yes (Death, Other)
  Sender: FDA-Public Use
  Company Number: PHHY2012AU014733

PATIENT
  Sex: Male

DRUGS (3)
  1. BENZTROPINE MESYLATE [Concomitant]
     Indication: EXTRAPYRAMIDAL DISORDER
     Dosage: 1 MG, (NOTCE)
     Route: 048
     Dates: start: 20120101
  2. ARIPIPRAZOLE [Concomitant]
     Indication: SCHIZOPHRENIA
     Dosage: 15 MG, (NOTCE)
     Route: 048
     Dates: start: 20110401
  3. CLOZARIL [Suspect]
     Indication: SCHIZOPHRENIA
     Dosage: 650 MG (NOTCE)
     Route: 048
     Dates: start: 20060819

REACTIONS (7)
  - CARDIAC DISORDER [None]
  - FALL [None]
  - BLOOD TRIGLYCERIDES INCREASED [None]
  - ANTIPSYCHOTIC DRUG LEVEL INCREASED [None]
  - LOSS OF CONSCIOUSNESS [None]
  - HIGH DENSITY LIPOPROTEIN DECREASED [None]
  - LOW DENSITY LIPOPROTEIN INCREASED [None]
